FAERS Safety Report 25483943 (Version 1)
Quarter: 2025Q2

REPORT INFORMATION
  Report Type: Spontaneous
  Country: US (occurrence: US)
  Receive Date: 20250626
  Receipt Date: 20250626
  Transmission Date: 20250717
  Serious: Yes (Hospitalization, Other)
  Sender: PFIZER
  Company Number: US-PFIZER INC-PV202500075547

PATIENT
  Age: 55 Year
  Sex: Female

DRUGS (2)
  1. SIROLIMUS [Suspect]
     Active Substance: SIROLIMUS
     Indication: Stem cell transplant
     Dosage: 2 MG, 1X/DAY
  2. PREDNISONE [Concomitant]
     Active Substance: PREDNISONE
     Indication: Stem cell transplant
     Dosage: 30 MG, 1X/DAY

REACTIONS (2)
  - Hypertriglyceridaemia [Recovering/Resolving]
  - Pseudohyponatraemia [Unknown]
